FAERS Safety Report 18215075 (Version 1)
Quarter: 2020Q3

REPORT INFORMATION
  Report Type: Spontaneous
  Country: CA (occurrence: CA)
  Receive Date: 20200831
  Receipt Date: 20200831
  Transmission Date: 20201103
  Serious: Yes (Other)
  Sender: FDA-Public Use
  Company Number: CA-GE HEALTHCARE LIFE SCIENCES-2020CSU003858

PATIENT

DRUGS (3)
  1. OMNIPAQUE [Suspect]
     Active Substance: IOHEXOL
     Indication: DIZZINESS
  2. OMNIPAQUE [Suspect]
     Active Substance: IOHEXOL
     Indication: COMPUTERISED TOMOGRAM
     Dosage: 50 ML, SINGLE
     Route: 042
     Dates: start: 20200825, end: 20200825
  3. OMNIPAQUE [Suspect]
     Active Substance: IOHEXOL
     Indication: HEADACHE

REACTIONS (3)
  - Dysphagia [Recovering/Resolving]
  - Urticaria [Recovering/Resolving]
  - Throat irritation [Recovering/Resolving]

NARRATIVE: CASE EVENT DATE: 20200825
